FAERS Safety Report 7916655-0 (Version None)
Quarter: 2011Q4

REPORT INFORMATION
  Report Type: 
  Country: None (occurrence: None)
  Receive Date: 20111116
  Receipt Date: 20111109
  Transmission Date: 20120403
  Serious: Yes (Hospitalization)
  Sender: FDA-Public Use
  Company Number: JP-JNJFOC-20111009717

PATIENT
  Sex: Male
  Weight: 57 kg

DRUGS (34)
  1. BORTEZOMIB [Suspect]
     Indication: MULTIPLE MYELOMA
     Dosage: CYCLE 1
     Route: 040
     Dates: start: 20110715, end: 20110715
  2. BORTEZOMIB [Suspect]
     Dosage: CYCLE 2
     Route: 040
     Dates: start: 20110822, end: 20110822
  3. BORTEZOMIB [Suspect]
     Dosage: CYCLE 3
     Route: 040
     Dates: start: 20111020, end: 20111020
  4. LANSOPRAZOLE [Concomitant]
     Route: 048
     Dates: end: 20110723
  5. DOXORUBICIN HCL [Suspect]
     Indication: MULTIPLE MYELOMA
     Dosage: CYCLE 2
     Route: 042
     Dates: start: 20110815, end: 20110815
  6. DOXORUBICIN HCL [Suspect]
     Dosage: CYCLE 1
     Route: 042
     Dates: start: 20110715, end: 20110715
  7. BORTEZOMIB [Suspect]
     Dosage: CYCLE 2
     Route: 040
     Dates: start: 20110819, end: 20110819
  8. GRANISETRON [Concomitant]
     Route: 041
     Dates: start: 20110712, end: 20110722
  9. ZOVIRAX [Concomitant]
     Route: 048
     Dates: start: 20110712, end: 20110724
  10. MAXIPIME [Concomitant]
     Route: 042
     Dates: start: 20110715, end: 20110717
  11. BORTEZOMIB [Suspect]
     Dosage: CYCLE 1
     Route: 040
     Dates: start: 20110722, end: 20110722
  12. PANTOSIN [Concomitant]
     Dosage: 100-300 MG
     Route: 048
     Dates: start: 20110816, end: 20111004
  13. MAGMITT [Concomitant]
     Dosage: 330-990 MG
     Route: 048
     Dates: end: 20110724
  14. POTASSIUM CHLORIDE [Concomitant]
     Route: 041
     Dates: start: 20110716, end: 20110717
  15. POTASSIUM CHLORIDE [Concomitant]
     Dosage: 1000-1500 ML
     Route: 041
     Dates: start: 20110712, end: 20110714
  16. HARTMANN SOLUTION [Concomitant]
     Route: 041
     Dates: start: 20110722, end: 20110722
  17. BORTEZOMIB [Suspect]
     Dosage: CYCLE 1
     Route: 040
     Dates: start: 20110712, end: 20110712
  18. BORTEZOMIB [Suspect]
     Dosage: CYCLE 3
     Route: 040
     Dates: start: 20110920, end: 20110920
  19. BORTEZOMIB [Suspect]
     Dosage: CYCLE 3
     Route: 040
     Dates: start: 20110913, end: 20110913
  20. PANTOSIN [Concomitant]
     Dosage: 100-300 MG
     Route: 048
     Dates: end: 20110724
  21. GRANISETRON [Concomitant]
     Route: 041
     Dates: start: 20110712, end: 20110822
  22. HARTMANN SOLUTION [Concomitant]
     Route: 041
     Dates: start: 20110812, end: 20110822
  23. BORTEZOMIB [Suspect]
     Dosage: CYCLE 1
     Route: 040
     Dates: start: 20110719, end: 20110719
  24. BORTEZOMIB [Suspect]
     Dosage: CYCLE 2
     Route: 040
     Dates: start: 20110812, end: 20110812
  25. MAGMITT [Concomitant]
     Dosage: 330-990 MG
     Route: 048
     Dates: start: 20110816, end: 20111004
  26. DOXORUBICIN HCL [Suspect]
     Dosage: CYCLE 3
     Route: 042
     Dates: start: 20110916, end: 20110916
  27. BORTEZOMIB [Suspect]
     Dosage: CYCLE 3
     Route: 040
     Dates: start: 20110923, end: 20110923
  28. BORTEZOMIB [Suspect]
     Dosage: CYCLE 2
     Route: 040
     Dates: start: 20110815, end: 20110815
  29. SUNRYTHM [Concomitant]
     Route: 048
     Dates: end: 20111011
  30. BORTEZOMIB [Suspect]
     Dosage: CYCLE 3
     Route: 040
     Dates: start: 20110916, end: 20110916
  31. SODIUM BICARBONATE [Concomitant]
     Dosage: 20-60 ML
     Route: 040
     Dates: start: 20110612, end: 20110714
  32. ZOVIRAX [Concomitant]
     Route: 048
     Dates: start: 20110804, end: 20111004
  33. HARTMANN SOLUTION [Concomitant]
     Route: 041
     Dates: start: 20110719, end: 20110719
  34. XALATAN [Concomitant]
     Route: 031

REACTIONS (1)
  - BRONCHIOLITIS [None]
